FAERS Safety Report 7791639-4 (Version None)
Quarter: 2011Q4

REPORT INFORMATION
  Report Type: 
  Country: None (occurrence: None)
  Receive Date: 20111003
  Receipt Date: 20110919
  Transmission Date: 20120403
  Serious: Yes (Hospitalization, Other)
  Sender: FDA-Public Use
  Company Number: US-ELI_LILLY_AND_COMPANY-US201107004675

PATIENT
  Age: 81 Year
  Sex: Female

DRUGS (7)
  1. BENICAR [Concomitant]
  2. CLONIDINE [Concomitant]
  3. FORTEO [Suspect]
     Indication: OSTEOPOROSIS
     Dosage: 20 UG, QD
     Dates: start: 20110612, end: 20110701
  4. ANASTROZOLE [Concomitant]
  5. ATENOLOL [Concomitant]
  6. VITAMIN D [Concomitant]
  7. DYNACIRC [Concomitant]

REACTIONS (4)
  - INTENTIONAL DRUG MISUSE [None]
  - CEREBROVASCULAR ACCIDENT [None]
  - INTRACRANIAL ANEURYSM [None]
  - ASTHENIA [None]
